FAERS Safety Report 11098511 (Version 1)
Quarter: 2015Q2

REPORT INFORMATION
  Report Type: Spontaneous
  Country: US (occurrence: US)
  Receive Date: 20150507
  Receipt Date: 20150507
  Transmission Date: 20150821
  Serious: No
  Sender: FDA-Public Use
  Company Number: US-AMGEN-USASP2014091935

PATIENT
  Age: 73 Year
  Sex: Male

DRUGS (2)
  1. ARANESP [Suspect]
     Active Substance: DARBEPOETIN ALFA
     Indication: MYELODYSPLASTIC SYNDROME
     Dosage: 300 MUG, ONE DOSE
     Route: 065
     Dates: start: 201308
  2. ARANESP [Suspect]
     Active Substance: DARBEPOETIN ALFA

REACTIONS (3)
  - Blood iron abnormal [Unknown]
  - No therapeutic response [Unknown]
  - Haemoglobin abnormal [Unknown]

NARRATIVE: CASE EVENT DATE: 201408
